FAERS Safety Report 15903969 (Version 2)
Quarter: 2019Q1

REPORT INFORMATION
  Report Type: Spontaneous
  Country: US (occurrence: US)
  Receive Date: 20190204
  Receipt Date: 20190313
  Transmission Date: 20190417
  Serious: Yes (Hospitalization)
  Sender: FDA-Public Use
  Company Number: US-JNJFOC-20190126023

PATIENT
  Age: 58 Year
  Sex: Female
  Weight: 114.31 kg

DRUGS (2)
  1. POTASSIUM [Concomitant]
     Active Substance: POTASSIUM
     Route: 065
  2. XARELTO [Suspect]
     Active Substance: RIVAROXABAN
     Indication: CEREBROVASCULAR ACCIDENT
     Dosage: ONCE DAILY ADMINISTERED AFTER DINNER
     Route: 048
     Dates: start: 20181103, end: 20190113

REACTIONS (2)
  - Product label issue [Unknown]
  - Haemorrhagic hepatic cyst [Unknown]

NARRATIVE: CASE EVENT DATE: 20190114
